FAERS Safety Report 7049946-9 (Version None)
Quarter: 2010Q4

REPORT INFORMATION
  Report Type: 
  Country: None (occurrence: None)
  Receive Date: 20101013
  Receipt Date: 20100927
  Transmission Date: 20110411
  Serious: Yes (Hospitalization, Other)
  Sender: FDA-Public Use
  Company Number: ACO_02417_2010

PATIENT
  Sex: Female
  Weight: 79.3795 kg

DRUGS (3)
  1. AMPYRA [Suspect]
     Indication: GAIT DISTURBANCE
     Dosage: (10 MG BID ORAL)
     Route: 048
     Dates: start: 20100801, end: 20100921
  2. BETASERON [Concomitant]
  3. TYLENOL (CAPLET) [Concomitant]

REACTIONS (3)
  - DROOLING [None]
  - TONGUE BITING [None]
  - TREMOR [None]
